FAERS Safety Report 4308826-X (Version None)
Quarter: 2004Q1

REPORT INFORMATION
  Report Type: 
  Country: None (occurrence: None)
  Receive Date: 20040227
  Receipt Date: 20040106
  Transmission Date: 20041129
  Serious: No
  Sender: FDA-Public Use
  Company Number: 2004UW00116

PATIENT
  Age: 54 Year
  Sex: Male
  Weight: 113.3993 kg

DRUGS (8)
  1. SEROQUEL [Suspect]
     Indication: SCHIZOPHRENIA
     Dosage: 300 MG HS PO
     Route: 048
     Dates: start: 20030601
  2. NO MATCH [Suspect]
     Indication: BLOOD CHOLESTEROL INCREASED
  3. RISPERDAL [Suspect]
  4. ZYPREXA [Concomitant]
  5. NEXIUM [Concomitant]
  6. GEODON [Concomitant]
  7. LAMISIL [Concomitant]
  8. THIAMINE [Concomitant]

REACTIONS (8)
  - EYE PAIN [None]
  - INFLAMMATION [None]
  - INJURY CORNEAL [None]
  - INSOMNIA [None]
  - PERIPHERAL COLDNESS [None]
  - RETINAL INJURY [None]
  - VITREOUS FLOATERS [None]
  - VOMITING [None]
